FAERS Safety Report 11307335 (Version 1)
Quarter: 2015Q3

REPORT INFORMATION
  Report Type: Spontaneous
  Country: US (occurrence: US)
  Receive Date: 20150723
  Receipt Date: 20150723
  Transmission Date: 20151125
  Serious: No
  Sender: FDA-Public Use
  Company Number: US-BAUSCH-SP08128

PATIENT
  Age: 64 Year
  Sex: Female
  Weight: 39.95 kg

DRUGS (10)
  1. PARACETAMOL [Concomitant]
     Active Substance: ACETAMINOPHEN
     Indication: HEADACHE
  2. CALCIUM [Concomitant]
     Active Substance: CALCIUM
     Indication: SUPPLEMENTATION THERAPY
  3. XIFAXAN [Suspect]
     Active Substance: RIFAXIMIN
     Indication: ABDOMINAL DISTENSION
     Route: 048
     Dates: start: 20140729
  4. MAGNESIUM [Concomitant]
     Active Substance: MAGNESIUM
     Indication: SUPPLEMENTATION THERAPY
  5. VITAMIN D [Concomitant]
     Active Substance: CHOLECALCIFEROL
     Indication: SUPPLEMENTATION THERAPY
  6. XIFAXAN [Suspect]
     Active Substance: RIFAXIMIN
     Indication: GASTROOESOPHAGEAL REFLUX DISEASE
  7. OMEGA [Concomitant]
     Active Substance: CONVALLARIA MAJALIS\CRATAEGUS LAEVIGATA LEAF\PROXYPHYLLINE
     Indication: SUPPLEMENTATION THERAPY
  8. XIFAXAN [Suspect]
     Active Substance: RIFAXIMIN
     Indication: ABDOMINAL DISCOMFORT
  9. AMITRIPTYLINE [Concomitant]
     Active Substance: AMITRIPTYLINE
     Indication: GASTROINTESTINAL DISORDER
  10. PARACETAMOL [Concomitant]
     Active Substance: ACETAMINOPHEN
     Indication: PAIN

REACTIONS (3)
  - Haematochezia [Not Recovered/Not Resolved]
  - Abdominal distension [Not Recovered/Not Resolved]
  - Abdominal pain upper [Not Recovered/Not Resolved]

NARRATIVE: CASE EVENT DATE: 20140801
